FAERS Safety Report 4501662-0 (Version None)
Quarter: 2004Q4

REPORT INFORMATION
  Report Type: 
  Country: None (occurrence: None)
  Receive Date: 20041115
  Receipt Date: 20041115
  Transmission Date: 20050328
  Serious: Yes (Hospitalization)
  Sender: FDA-Public Use
  Company Number: None

PATIENT
  Age: 66 Year
  Sex: Male
  Weight: 76.2 kg

DRUGS (7)
  1. LISINOPRIL [Suspect]
  2. HYDROXYZINE PAMOATE [Concomitant]
  3. SIMVASTATIN [Concomitant]
  4. ASPIRIN [Concomitant]
  5. METOPROLOL [Concomitant]
  6. INSULIN HUMAN NPH [Concomitant]
  7. CALCIUM ACETATE [Concomitant]

REACTIONS (1)
  - HYPERKALAEMIA [None]
